FAERS Safety Report 6937201-4 (Version None)
Quarter: 2010Q3

REPORT INFORMATION
  Report Type: 
  Country: None (occurrence: None)
  Receive Date: 20100823
  Receipt Date: 20100818
  Transmission Date: 20110219
  Serious: Yes (Hospitalization)
  Sender: FDA-Public Use
  Company Number: A0876537A

PATIENT
  Age: 71 Year
  Sex: Male

DRUGS (8)
  1. OMACOR [Suspect]
     Dosage: 3CAP PER DAY
     Route: 048
     Dates: start: 20050101
  2. SYNTHROID [Concomitant]
  3. PREVACID [Concomitant]
  4. ALTACE [Concomitant]
  5. UNSPECIFIED MEDICATION [Concomitant]
  6. ASPIRIN [Concomitant]
  7. VITAMINS [Concomitant]
  8. INSULIN [Concomitant]

REACTIONS (7)
  - ASTHMA [None]
  - DRY MOUTH [None]
  - DRY THROAT [None]
  - DYSPHONIA [None]
  - PAIN [None]
  - SINUS DISORDER [None]
  - URINARY TRACT INFECTION [None]
